FAERS Safety Report 9495214 (Version 1)
Quarter: 2013Q3

REPORT INFORMATION
  Report Type: Report from Study
  Country: CA (occurrence: CA)
  Receive Date: 20130903
  Receipt Date: 20130903
  Transmission Date: 20140515
  Serious: Yes (Other)
  Sender: FDA-Public Use
  Company Number: CA-ABBOTT-13P-028-1140014-00

PATIENT
  Sex: Male
  Weight: 57.2 kg

DRUGS (1)
  1. KALETRA 200/50 [Suspect]
     Indication: ANTIRETROVIRAL THERAPY
     Dosage: 200 MG/ 50 MG
     Route: 048

REACTIONS (8)
  - Meniscus removal [Unknown]
  - CD4 lymphocytes decreased [Unknown]
  - Viral load increased [Unknown]
  - Weight decreased [Unknown]
  - Oral fungal infection [Unknown]
  - Hepatitis [Unknown]
  - Hepatitis B virus test positive [Unknown]
  - Hepatitis C virus test positive [Unknown]
